FAERS Safety Report 6047789-6 (Version None)
Quarter: 2009Q1

REPORT INFORMATION
  Report Type: 
  Country: None (occurrence: None)
  Receive Date: 20090123
  Receipt Date: 20090115
  Transmission Date: 20090719
  Serious: Yes (Other)
  Sender: FDA-Public Use
  Company Number: CA-ASTRAZENECA-2009UW01407

PATIENT
  Age: 67 Year
  Sex: Male

DRUGS (3)
  1. NEXIUM [Suspect]
     Route: 048
  2. URSO 250 [Suspect]
     Route: 048
  3. METFORMIN [Concomitant]

REACTIONS (3)
  - BLOOD CREATININE INCREASED [None]
  - KIDNEY FIBROSIS [None]
  - TUBULOINTERSTITIAL NEPHRITIS [None]
